FAERS Safety Report 11219795 (Version 2)
Quarter: 2015Q3

REPORT INFORMATION
  Report Type: Spontaneous
  Country: US (occurrence: US)
  Receive Date: 20150625
  Receipt Date: 20150722
  Transmission Date: 20151125
  Serious: Yes (Hospitalization)
  Sender: FDA-Public Use
  Company Number: US-JNJFOC-20150618046

PATIENT
  Sex: Male

DRUGS (7)
  1. ALLOPURINOL. [Concomitant]
     Active Substance: ALLOPURINOL
  2. DILANTIN [Concomitant]
     Active Substance: PHENYTOIN
     Dosage: Q AM AND PM
  3. DILANTIN [Concomitant]
     Active Substance: PHENYTOIN
     Dosage: MID DAY
  4. PHENOBARBITAL. [Concomitant]
     Active Substance: PHENOBARBITAL
     Route: 048
  5. IMBRUVICA [Suspect]
     Active Substance: IBRUTINIB
     Indication: CHRONIC LYMPHOCYTIC LEUKAEMIA
     Route: 048
     Dates: start: 20141021
  6. COUMADIN [Concomitant]
     Active Substance: WARFARIN SODIUM
  7. HYDROCODONE [Concomitant]
     Active Substance: HYDROCODONE
     Dosage: 5/325 UNK, Q6H PRN

REACTIONS (3)
  - Cervical spinal stenosis [Recovered/Resolved]
  - Cervical myelopathy [Unknown]
  - Neck surgery [Unknown]

NARRATIVE: CASE EVENT DATE: 2015
